FAERS Safety Report 19447603 (Version 1)
Quarter: 2021Q2

REPORT INFORMATION
  Report Type: Spontaneous
  Country: US (occurrence: US)
  Receive Date: 20210622
  Receipt Date: 20210622
  Transmission Date: 20210717
  Serious: No
  Sender: FDA-Public Use
  Company Number: US-SA-2021SA201938

PATIENT
  Sex: Female
  Weight: 68.04 kg

DRUGS (15)
  1. MORPHINE [Concomitant]
     Active Substance: MORPHINE
  2. MS CONTIN [Concomitant]
     Active Substance: MORPHINE SULFATE
  3. TOPAMAX [Concomitant]
     Active Substance: TOPIRAMATE
  4. VITAMIN D3 CALCIUM [Concomitant]
     Active Substance: CALCIUM\CHOLECALCIFEROL
  5. CERDELGA [Suspect]
     Active Substance: ELIGLUSTAT
     Indication: GAUCHER^S DISEASE
     Dosage: 84 MG, Q12H
     Route: 048
     Dates: start: 20180112
  6. CHLORHEXIDINE [Concomitant]
     Active Substance: CHLORHEXIDINE
  7. EPIDUO [Concomitant]
     Active Substance: ADAPALENE\BENZOYL PEROXIDE
  8. LEVOTHYROXINE. [Concomitant]
     Active Substance: LEVOTHYROXINE
  9. IRON [Concomitant]
     Active Substance: IRON
  10. VITAMIN D2 [Concomitant]
     Active Substance: ERGOCALCIFEROL
  11. MONTELUKAST [Concomitant]
     Active Substance: MONTELUKAST SODIUM
  12. SUDAFED [Concomitant]
     Active Substance: PSEUDOEPHEDRINE HYDROCHLORIDE
  13. VITAMINS NOS [Concomitant]
     Active Substance: VITAMINS
  14. ZOLPIDEM [Concomitant]
     Active Substance: ZOLPIDEM TARTRATE
  15. BUPROPION. [Concomitant]
     Active Substance: BUPROPION

REACTIONS (1)
  - Product dose omission issue [Unknown]
